FAERS Safety Report 18716855 (Version 1)
Quarter: 2021Q1

REPORT INFORMATION
  Report Type: Report from Study
  Country: CA (occurrence: CA)
  Receive Date: 20210108
  Receipt Date: 20210108
  Transmission Date: 20210419
  Serious: Yes (Other)
  Sender: FDA-Public Use
  Company Number: CA-TAKEDA-2019TUS012261

PATIENT
  Age: 53 Year
  Sex: Female

DRUGS (8)
  1. VEDOLIZUMAB [Suspect]
     Active Substance: VEDOLIZUMAB
     Dosage: 300 MILLIGRAM
     Route: 042
  2. FUROSEMIDE. [Concomitant]
     Active Substance: FUROSEMIDE
     Indication: CARDIAC DISORDER
     Dosage: UNK UNK, QD
  3. VEDOLIZUMAB [Suspect]
     Active Substance: VEDOLIZUMAB
     Dosage: 300 MILLIGRAM
     Route: 042
  4. SPIRONOLACTONE TEVA [Concomitant]
     Active Substance: SPIRONOLACTONE
     Indication: CARDIAC DISORDER
     Dosage: 25 MILLIGRAM
  5. RESTASIS [Concomitant]
     Active Substance: CYCLOSPORINE
     Indication: UVEITIS
     Dosage: UNK
  6. VEDOLIZUMAB [Suspect]
     Active Substance: VEDOLIZUMAB
     Indication: CROHN^S DISEASE
     Dosage: 300 MILLIGRAM
     Route: 042
     Dates: start: 20180212
  7. VALSARTAN. [Concomitant]
     Active Substance: VALSARTAN
     Indication: CARDIAC DISORDER
     Dosage: 80 MILLIGRAM
  8. CARVEDILOL. [Concomitant]
     Active Substance: CARVEDILOL
     Indication: CARDIAC DISORDER
     Dosage: 25 MILLIGRAM, BID

REACTIONS (8)
  - Sinusitis [Unknown]
  - Nasopharyngitis [Not Recovered/Not Resolved]
  - Productive cough [Unknown]
  - Lower respiratory tract infection [Unknown]
  - Sinus congestion [Not Recovered/Not Resolved]
  - Ear congestion [Not Recovered/Not Resolved]
  - Malaise [Unknown]
  - Paranasal sinus hypersecretion [Not Recovered/Not Resolved]

NARRATIVE: CASE EVENT DATE: 2019
